FAERS Safety Report 21259890 (Version 1)
Quarter: 2022Q3

REPORT INFORMATION
  Report Type: Spontaneous
  Country: US (occurrence: None)
  Receive Date: 20220825
  Receipt Date: 20220825
  Transmission Date: 20221027
  Serious: Yes (Hospitalization)
  Sender: FDA-Public Use
  Company Number: None

PATIENT
  Sex: Female

DRUGS (1)
  1. IMATINIB MESYLATE [Suspect]
     Active Substance: IMATINIB MESYLATE
     Indication: Gastrointestinal stromal tumour
     Dosage: FREQUENCY : ONCE;?
     Route: 048
     Dates: start: 202206

REACTIONS (4)
  - Rash pruritic [None]
  - Diarrhoea [None]
  - Abdominal discomfort [None]
  - Internal haemorrhage [None]
